FAERS Safety Report 19429805 (Version 1)
Quarter: 2021Q2

REPORT INFORMATION
  Report Type: Report from Study
  Country: None (occurrence: AR)
  Receive Date: 20210617
  Receipt Date: 20210617
  Transmission Date: 20210717
  Serious: Yes (Other)
  Sender: FDA-Public Use
  Company Number: AR-ABBVIE-21K-007-3953320-00

PATIENT
  Age: 73 Year
  Sex: Female

DRUGS (1)
  1. HUMIRA [Suspect]
     Active Substance: ADALIMUMAB
     Indication: RHEUMATOID ARTHRITIS
     Route: 058
     Dates: start: 20131130

REACTIONS (4)
  - Back pain [Recovered/Resolved]
  - Cardiomegaly [Not Recovered/Not Resolved]
  - Pleural effusion [Unknown]
  - Radiculopathy [Recovered/Resolved]

NARRATIVE: CASE EVENT DATE: 202105
